FAERS Safety Report 4396489-7 (Version None)
Quarter: 2004Q3

REPORT INFORMATION
  Report Type: 
  Country: None (occurrence: None)
  Receive Date: 20040709
  Receipt Date: 20040610
  Transmission Date: 20050211
  Serious: Yes (Other)
  Sender: FDA-Public Use
  Company Number: IL-JNJFOC-20040700666

PATIENT
  Sex: Female

DRUGS (1)
  1. RISPERDAL [Suspect]
     Dosage: 2 MG, 1 IN 1 DAY

REACTIONS (3)
  - HAEMOLYSIS [None]
  - IRON DEFICIENCY [None]
  - LUPUS-LIKE SYNDROME [None]
